FAERS Safety Report 25918549 (Version 1)
Quarter: 2025Q4

REPORT INFORMATION
  Report Type: Spontaneous
  Country: US (occurrence: None)
  Receive Date: 20251010
  Receipt Date: 20251010
  Transmission Date: 20260118
  Serious: Yes (Hospitalization)
  Sender: FDA-CTU
  Company Number: None

PATIENT
  Age: 43 Year
  Sex: Female
  Weight: 60.75 kg

DRUGS (2)
  1. PREDNISONE [Suspect]
     Active Substance: PREDNISONE
     Indication: Ear pain
     Dosage: OTHER QUANTITY : 5 TABLET(S);?FREQUENCY : DAILY;?
     Route: 048
     Dates: start: 20250905, end: 20250909
  2. PEPCID AC [Concomitant]
     Active Substance: FAMOTIDINE

REACTIONS (12)
  - Erythema [None]
  - Erythema [None]
  - Dyspnoea [None]
  - Mental impairment [None]
  - Tremor [None]
  - Generalised oedema [None]
  - Sympathomimetic effect [None]
  - Panic attack [None]
  - Derealisation [None]
  - Gastrooesophageal reflux disease [None]
  - Burning sensation [None]
  - Insomnia [None]

NARRATIVE: CASE EVENT DATE: 20250910
